FAERS Safety Report 8853173 (Version 2)
Quarter: 2012Q4

REPORT INFORMATION
  Report Type: Report from Study
  Country: DE (occurrence: DE)
  Receive Date: 20121022
  Receipt Date: 20121226
  Transmission Date: 20130627
  Serious: Yes (Death, Hospitalization)
  Sender: FDA-Public Use
  Company Number: DE-ROCHE-1147350

PATIENT
  Sex: Male
  Weight: 42 kg

DRUGS (4)
  1. BEVACIZUMAB [Suspect]
     Indication: NON-SMALL CELL LUNG CANCER
     Route: 042
     Dates: start: 20120612, end: 20121012
  2. CARBOPLATIN [Concomitant]
     Indication: NON-SMALL CELL LUNG CANCER
     Dosage: 5 AUC
     Route: 042
     Dates: start: 20120612, end: 20120912
  3. GEMCITABINE [Concomitant]
     Indication: NON-SMALL CELL LUNG CANCER
     Route: 042
     Dates: start: 20120612, end: 20120612
  4. VINORELBINE [Concomitant]
     Indication: NON-SMALL CELL LUNG CANCER
     Route: 042
     Dates: start: 20120619, end: 20120912

REACTIONS (5)
  - Jugular vein thrombosis [Not Recovered/Not Resolved]
  - General physical health deterioration [Fatal]
  - Dyspnoea [Not Recovered/Not Resolved]
  - Tracheal fistula [Not Recovered/Not Resolved]
  - Oesophageal stenosis [Not Recovered/Not Resolved]
